FAERS Safety Report 7200289-X (Version None)
Quarter: 2010Q4

REPORT INFORMATION
  Report Type: 
  Country: None (occurrence: None)
  Receive Date: 20101228
  Receipt Date: 20101213
  Transmission Date: 20110411
  Serious: Yes (Death, Life-Threatening)
  Sender: FDA-Public Use
  Company Number: B0689456A

PATIENT
  Sex: Female
  Weight: 40 kg

DRUGS (38)
  1. ALKERAN [Suspect]
     Indication: ALLOGENIC BONE MARROW TRANSPLANTATION THERAPY
     Dosage: 135MG PER DAY
     Route: 042
     Dates: start: 20010819, end: 20010820
  2. DALACIN [Suspect]
     Route: 048
  3. AZACTAM [Suspect]
     Route: 065
  4. MIRACLID [Suspect]
     Route: 042
  5. FLUDARABINE PHOSPHATE [Concomitant]
     Indication: ALLOGENIC BONE MARROW TRANSPLANTATION THERAPY
     Dosage: 45MGM2 PER DAY
     Route: 042
     Dates: start: 20010816, end: 20010820
  6. UNKNOWN DRUG [Concomitant]
     Indication: ALLOGENIC BONE MARROW TRANSPLANTATION THERAPY
     Route: 065
     Dates: start: 20010813, end: 20010813
  7. UNKNOWN DRUG [Concomitant]
     Route: 065
     Dates: start: 20010816, end: 20010816
  8. NEU-UP [Concomitant]
     Dosage: 300MCG PER DAY
     Route: 042
     Dates: start: 20010827, end: 20010909
  9. METHOTREXATE [Concomitant]
     Indication: IMMUNOSUPPRESSION
     Dosage: 15MG PER DAY
     Route: 065
     Dates: start: 20010823, end: 20010823
  10. METHOTREXATE [Concomitant]
     Dosage: 10MG PER DAY
     Route: 065
     Dates: start: 20010825, end: 20010825
  11. METHOTREXATE [Concomitant]
     Dosage: 10MG PER DAY
     Route: 065
     Dates: start: 20010828, end: 20010828
  12. CYCLOSPORINE [Concomitant]
     Dosage: 3MGK PER DAY
     Route: 065
     Dates: start: 20010821, end: 20010929
  13. APLACE [Concomitant]
     Dosage: 300MG PER DAY
     Route: 048
     Dates: start: 19930101
  14. JUVELA N [Concomitant]
     Dosage: 300MG PER DAY
     Route: 048
     Dates: start: 19970101
  15. METHYCOBAL [Concomitant]
     Dosage: 1500MCG PER DAY
     Route: 048
     Dates: start: 19930101
  16. URSO 250 [Concomitant]
     Dosage: 600MG PER DAY
     Route: 048
     Dates: start: 19970101
  17. UNKNOWN DRUG [Concomitant]
     Dosage: 300MG PER DAY
     Route: 048
     Dates: start: 20010801
  18. PREMARIN [Concomitant]
     Dosage: .625MG PER DAY
     Route: 048
     Dates: start: 20010801
  19. ZEFIX [Concomitant]
     Dosage: 100MG PER DAY
     Route: 048
     Dates: start: 20010810
  20. ISCOTIN [Concomitant]
     Dosage: 300MG PER DAY
     Route: 048
     Dates: start: 20010816
  21. ZOVIRAX [Concomitant]
     Dosage: 1000MG PER DAY
     Route: 048
     Dates: start: 20010816
  22. ZOVIRAX [Concomitant]
     Dosage: 1000MG PER DAY
     Route: 048
     Dates: start: 20010913
  23. SELBEX [Concomitant]
     Dosage: 150MG PER DAY
     Route: 048
     Dates: start: 20010816
  24. VANCOMYCIN HYDROCHLORIDE [Concomitant]
     Dosage: 1.5G PER DAY
     Route: 048
     Dates: start: 20010816
  25. FUNGIZONE [Concomitant]
     Dosage: 1200MG PER DAY
     Route: 048
     Dates: start: 20010816
  26. CRAVIT [Concomitant]
     Dosage: 300MG PER DAY
     Route: 048
     Dates: start: 20010816
  27. ZOVIRAX [Concomitant]
     Dosage: 500MG PER DAY
     Route: 042
     Dates: start: 20010825
  28. MAXIPIME [Concomitant]
     Dosage: 4G PER DAY
     Route: 042
     Dates: start: 20010826
  29. DIFLUCAN [Concomitant]
     Dosage: 400MG PER DAY
     Route: 042
     Dates: start: 20010901
  30. MEROPENEM [Concomitant]
     Dosage: 2G PER DAY
     Route: 042
     Dates: start: 20010831
  31. MINOMYCIN [Concomitant]
     Dosage: 200MG PER DAY
     Route: 042
     Dates: start: 20010829
  32. PENTCILLIN [Concomitant]
     Dosage: 8G PER DAY
     Dates: start: 20010905
  33. POLYMYXIN-B-SULFATE [Concomitant]
     Dosage: 6IUAX PER DAY
     Route: 048
     Dates: start: 20010906
  34. FRAGMIN [Concomitant]
     Dosage: 4IU3 PER DAY
     Route: 042
     Dates: start: 20010914
  35. RENIVACE [Concomitant]
     Dosage: 2.5MG PER DAY
     Route: 048
     Dates: start: 20010914
  36. DIFLUCAN [Concomitant]
     Dosage: 200MG PER DAY
     Route: 048
     Dates: start: 20010913
  37. KAYTWO [Concomitant]
     Dosage: 60ML PER DAY
     Route: 048
     Dates: start: 20010913
  38. MONILAC [Concomitant]
     Route: 048
     Dates: start: 20010913

REACTIONS (3)
  - CIRCULATORY COLLAPSE [None]
  - HEPATITIS B [None]
  - MULTI-ORGAN FAILURE [None]
